FAERS Safety Report 6533629-5 (Version None)
Quarter: 2010Q1

REPORT INFORMATION
  Report Type: 
  Country: None (occurrence: None)
  Receive Date: 20100108
  Receipt Date: 20100108
  Transmission Date: 20100710
  Serious: Yes (Hospitalization)
  Sender: FDA-Public Use
  Company Number: None

PATIENT
  Age: 42 Year
  Sex: Female
  Weight: 54.4316 kg

DRUGS (1)
  1. YASMIN [Suspect]
     Indication: MENSTRUAL DISORDER
     Dosage: 1 PILL 1 PER DAY
     Dates: start: 20021019, end: 20091210

REACTIONS (7)
  - BLADDER SPASM [None]
  - DEHYDRATION [None]
  - GASTRIC DISORDER [None]
  - MIGRAINE [None]
  - MYALGIA [None]
  - NEPHROLITHIASIS [None]
  - PORCELAIN GALLBLADDER [None]
